FAERS Safety Report 17110306 (Version 1)
Quarter: 2019Q4

REPORT INFORMATION
  Report Type: Spontaneous
  Country: US (occurrence: US)
  Receive Date: 20191108
  Receipt Date: 20191108
  Transmission Date: 20200122
  Serious: Yes (Hospitalization)
  Sender: FDA-Public Use
  Company Number: None

PATIENT
  Sex: Male

DRUGS (1)
  1. ERIVEDGE [Suspect]
     Active Substance: VISMODEGIB
     Indication: BASAL CELL CARCINOMA
     Route: 048
     Dates: start: 20190508

REACTIONS (6)
  - Muscle spasms [None]
  - Alopecia [None]
  - Taste disorder [None]
  - Pain [None]
  - Fatigue [None]
  - Cerebrovascular accident [None]
